FAERS Safety Report 6907103-8 (Version None)
Quarter: 2010Q3

REPORT INFORMATION
  Report Type: 
  Country: None (occurrence: None)
  Receive Date: 20100804
  Receipt Date: 20090707
  Transmission Date: 20110219
  Serious: Yes (Death)
  Sender: FDA-Public Use
  Company Number: US-PFIZER INC-2009206597

PATIENT
  Age: 60 Year

DRUGS (4)
  1. ADRIAMYCIN PFS [Suspect]
     Indication: BREAST CANCER
     Dosage: UNK
     Route: 042
     Dates: end: 20080101
  2. CYTOXAN [Suspect]
     Indication: BREAST CANCER
     Dosage: UNK
     Route: 042
     Dates: end: 20080101
  3. TAXOTERE [Suspect]
     Indication: BREAST CANCER
     Dosage: UNK
     Route: 042
     Dates: end: 20080101
  4. NEULASTA [Concomitant]

REACTIONS (1)
  - SEPSIS [None]
